FAERS Safety Report 8437496-4 (Version None)
Quarter: 2012Q2

REPORT INFORMATION
  Report Type: 
  Country: None (occurrence: None)
  Receive Date: 20120614
  Receipt Date: 20120425
  Transmission Date: 20120825
  Serious: No
  Sender: FDA-Public Use
  Company Number: US-AMGEN-USASP2012025961

PATIENT
  Age: 88 Year
  Sex: Male

DRUGS (8)
  1. METOPROLOL TARTRATE [Concomitant]
  2. REMERON [Concomitant]
     Dosage: 1 MG, QD
  3. CRESTOR [Concomitant]
  4. REMERON [Concomitant]
  5. LUPRON [Concomitant]
  6. MEGASEF [Concomitant]
  7. XGEVA [Suspect]
     Indication: PROSTATE CANCER METASTATIC
     Dosage: 120 MG, Q4WK
     Dates: start: 20110712
  8. CELEXA [Concomitant]
     Dosage: 1 MG, QD

REACTIONS (7)
  - HOT FLUSH [None]
  - ACTIVITIES OF DAILY LIVING IMPAIRED [None]
  - ASTHENIA [None]
  - NIGHT SWEATS [None]
  - FATIGUE [None]
  - BALANCE DISORDER [None]
  - FALL [None]
